FAERS Safety Report 16601279 (Version 1)
Quarter: 2019Q3

REPORT INFORMATION
  Report Type: Spontaneous
  Country: CA (occurrence: CA)
  Receive Date: 20190719
  Receipt Date: 20190719
  Transmission Date: 20191004
  Serious: Yes (Other)
  Sender: FDA-Public Use
  Company Number: CA-ASTRAZENECA-2019SF03964

PATIENT
  Sex: Female

DRUGS (6)
  1. FASLODEX [Suspect]
     Active Substance: FULVESTRANT
     Indication: BREAST NEOPLASM
     Dosage: 500.0MG UNKNOWN
     Route: 030
     Dates: start: 201702
  2. TAXOTERE [Concomitant]
     Active Substance: DOCETAXEL
     Dosage: 1 CYCLE
  3. TAXOL [Concomitant]
     Active Substance: PACLITAXEL
     Dosage: 1 CYCLE
  4. EPIRUBICIN [Concomitant]
     Active Substance: EPIRUBICIN
     Dosage: 75 MG/M2, 8 CYCLES
  5. ARIMIDEX [Suspect]
     Active Substance: ANASTROZOLE
     Route: 048
  6. IBRANCE [Suspect]
     Active Substance: PALBOCICLIB
     Indication: BREAST NEOPLASM
     Route: 048
     Dates: start: 201702

REACTIONS (1)
  - Malignant neoplasm progression [Unknown]
